FAERS Safety Report 16756565 (Version 1)
Quarter: 2019Q3

REPORT INFORMATION
  Report Type: Spontaneous
  Country: FR (occurrence: FR)
  Receive Date: 20190829
  Receipt Date: 20190829
  Transmission Date: 20191005
  Serious: Yes (Death)
  Sender: FDA-Public Use
  Company Number: FR-MYLANLABS-2019M1081617

PATIENT
  Age: 39 Year
  Sex: Female

DRUGS (2)
  1. PACLITAXEL. [Suspect]
     Active Substance: PACLITAXEL
     Indication: RECTAL CANCER STAGE II
     Dosage: UNK
     Route: 065
  2. PACLITAXEL. [Suspect]
     Active Substance: PACLITAXEL
     Indication: RECTAL CANCER RECURRENT
     Dosage: UNK
     Route: 065

REACTIONS (3)
  - Rectal cancer stage II [Fatal]
  - Product use in unapproved indication [Unknown]
  - Malignant neoplasm progression [Fatal]
